FAERS Safety Report 9130036 (Version 1)
Quarter: 2013Q1

REPORT INFORMATION
  Report Type: Spontaneous
  Country: US (occurrence: US)
  Receive Date: 20130228
  Receipt Date: 20130228
  Transmission Date: 20140127
  Serious: No
  Sender: FDA-Public Use
  Company Number: US-ASTRAZENECA-2013SE05512

PATIENT
  Sex: Female

DRUGS (1)
  1. CRESTOR [Suspect]
     Route: 048
     Dates: start: 2012

REACTIONS (7)
  - Panic attack [Unknown]
  - Dysstasia [Unknown]
  - Feeling hot [Unknown]
  - Dyspnoea [Unknown]
  - Abdominal discomfort [Unknown]
  - Pain in extremity [Unknown]
  - Muscle spasms [Unknown]
